FAERS Safety Report 26148924 (Version 1)
Quarter: 2025Q4

REPORT INFORMATION
  Report Type: Spontaneous
  Country: US (occurrence: US)
  Receive Date: 20251212
  Receipt Date: 20251212
  Transmission Date: 20260117
  Serious: No
  Sender: AMNEAL
  Company Number: US-AMNEAL PHARMACEUTICALS-2025-AMRX-02450

PATIENT
  Sex: Male

DRUGS (1)
  1. CLOBAZAM [Suspect]
     Active Substance: CLOBAZAM
     Indication: Product used for unknown indication
     Dosage: 2 MILLILITER (2.5MG/ML), DAILY
     Route: 048

REACTIONS (2)
  - Product packaging quantity issue [Unknown]
  - No adverse event [Unknown]
